FAERS Safety Report 6237520-3 (Version None)
Quarter: 2009Q2

REPORT INFORMATION
  Report Type: 
  Country: None (occurrence: None)
  Receive Date: 20090619
  Receipt Date: 20090615
  Transmission Date: 20091009
  Serious: Yes (Death)
  Sender: FDA-Public Use
  Company Number: US-GILEAD-2009-0022316

PATIENT
  Sex: Female

DRUGS (9)
  1. LETAIRIS [Suspect]
     Indication: PULMONARY ARTERIAL HYPERTENSION
  2. REMODULIN [Concomitant]
     Dates: start: 20090116
  3. FUROSEMIDE [Concomitant]
     Dates: start: 20090121
  4. ALDACTONE [Concomitant]
     Dates: start: 20090116
  5. LANOXIN [Concomitant]
     Dates: start: 20090116
  6. ZOLPIDEM TARTRATE [Concomitant]
     Dates: start: 20090121
  7. IBUPROFEN [Concomitant]
     Dates: start: 20090121
  8. FERROUS SULFATE TAB [Concomitant]
     Dates: start: 20090116
  9. COLACE [Concomitant]
     Dates: start: 20090116

REACTIONS (1)
  - DEATH [None]
